FAERS Safety Report 17233370 (Version 3)
Quarter: 2020Q1

REPORT INFORMATION
  Report Type: Spontaneous
  Country: SE (occurrence: SE)
  Receive Date: 20200104
  Receipt Date: 20200130
  Transmission Date: 20200409
  Serious: Yes (Hospitalization, Other)
  Sender: FDA-Public Use
  Company Number: SE-UNITED THERAPEUTICS-UNT-2019-021591

PATIENT

DRUGS (1)
  1. REMODULIN [Suspect]
     Active Substance: TREPROSTINIL
     Indication: PRODUCT USED FOR UNKNOWN INDICATION
     Dosage: UNK, CONTINUING (RATE OF 0.4 ML)
     Route: 041
     Dates: start: 20191128

REACTIONS (5)
  - Device related sepsis [Recovered/Resolved]
  - Product leakage [Unknown]
  - Staphylococcal sepsis [Recovered/Resolved]
  - Device malfunction [Unknown]
  - Malaise [Recovered/Resolved]

NARRATIVE: CASE EVENT DATE: 20191220
